FAERS Safety Report 20550897 (Version 1)
Quarter: 2022Q1

REPORT INFORMATION
  Report Type: Spontaneous
  Country: US (occurrence: US)
  Receive Date: 20220304
  Receipt Date: 20220304
  Transmission Date: 20220423
  Serious: No
  Sender: FDA-Public Use
  Company Number: US-JNJFOC-20220251380

PATIENT
  Age: 47 Year
  Sex: Female

DRUGS (1)
  1. PEPCID COMPLETE [Suspect]
     Active Substance: CALCIUM CARBONATE\FAMOTIDINE\MAGNESIUM HYDROXIDE
     Indication: Antacid therapy
     Dosage: 1 TABLET
     Route: 048
     Dates: start: 20220222

REACTIONS (1)
  - Abdominal pain [Unknown]
